FAERS Safety Report 5763270-3 (Version None)
Quarter: 2008Q2

REPORT INFORMATION
  Report Type: 
  Country: None (occurrence: None)
  Receive Date: 20080604
  Receipt Date: 20080604
  Transmission Date: 20081010
  Serious: Yes (Hospitalization)
  Sender: FDA-Public Use
  Company Number: None

PATIENT
  Age: 62 Year
  Sex: Female
  Weight: 77.1115 kg

DRUGS (3)
  1. FENTANYL [Suspect]
     Indication: PAIN
     Dosage: 100MCG/HR AND 25MCG/HR EVERY 48 HOURS TRANSDERMAL
     Route: 062
  2. TEMAZEPAM [Suspect]
     Indication: INSOMNIA
     Dosage: NIGHTLY PO 1 DOSE AT NIGHT
     Route: 048
  3. ZOLPIDEM [Concomitant]

REACTIONS (4)
  - AGITATION [None]
  - MENTAL STATUS CHANGES [None]
  - POOR QUALITY SLEEP [None]
  - UNRESPONSIVE TO STIMULI [None]
